FAERS Safety Report 4659403-2 (Version None)
Quarter: 2005Q2

REPORT INFORMATION
  Report Type: 
  Country: None (occurrence: None)
  Receive Date: 20050411
  Receipt Date: 20050124
  Transmission Date: 20051028
  Serious: Yes (Other)
  Sender: FDA-Public Use
  Company Number: 393549

PATIENT
  Age: 49 Year
  Sex: Female

DRUGS (5)
  1. FUZEON [Suspect]
     Indication: HIV INFECTION
     Dosage: 90 MG, 2 PER DAY, SUBCUTANEOUS
     Route: 058
     Dates: start: 20040815
  2. DURAGESIC-100 [Concomitant]
  3. VIDEX [Concomitant]
  4. EMTRIVA [Concomitant]
  5. KALETRA [Concomitant]

REACTIONS (3)
  - HYPOAESTHESIA [None]
  - MUSCLE TWITCHING [None]
  - TARDIVE DYSKINESIA [None]
